FAERS Safety Report 7132236-3 (Version None)
Quarter: 2010Q4

REPORT INFORMATION
  Report Type: 
  Country: None (occurrence: None)
  Receive Date: 20101202
  Receipt Date: 20101019
  Transmission Date: 20110411
  Serious: Yes (Death, Life-Threatening, Other)
  Sender: FDA-Public Use
  Company Number: US-BAXTER-2008BH010990

PATIENT
  Age: 52 Year
  Sex: Male
  Weight: 73 kg

DRUGS (52)
  1. HEPARIN SODIUM INJECTION [Suspect]
     Indication: THROMBOSIS PROPHYLAXIS
     Route: 010
     Dates: start: 20050225, end: 20080401
  2. HEPARIN SODIUM INJECTION [Suspect]
     Route: 042
     Dates: start: 20080129
  3. HEPARIN SODIUM INJECTION [Suspect]
     Route: 040
     Dates: start: 20041116, end: 20061010
  4. HEPARIN SODIUM INJECTION [Suspect]
     Route: 042
     Dates: start: 20080423, end: 20080423
  5. HEPARIN SODIUM INJECTION [Suspect]
     Route: 042
     Dates: start: 20070915, end: 20080422
  6. HEPARIN SODIUM INJECTION [Suspect]
     Route: 042
     Dates: start: 20041116, end: 20061010
  7. HEPARIN SODIUM INJECTION [Suspect]
     Route: 042
     Dates: start: 20070915, end: 20080422
  8. HEPARIN SODIUM INJECTION [Suspect]
     Route: 040
     Dates: start: 20061003, end: 20061003
  9. HEPARIN SODIUM INJECTION [Suspect]
     Route: 042
     Dates: start: 20070915, end: 20080422
  10. HEPARIN SODIUM INJECTION [Suspect]
     Route: 042
     Dates: start: 20061003, end: 20061003
  11. HEPARIN SODIUM INJECTION [Suspect]
     Route: 042
     Dates: start: 20070915, end: 20080422
  12. HEPARIN SODIUM INJECTION [Suspect]
     Route: 040
     Dates: start: 20061010, end: 20061010
  13. HEPARIN SODIUM INJECTION [Suspect]
     Route: 042
     Dates: start: 20070915, end: 20080422
  14. HEPARIN SODIUM INJECTION [Suspect]
     Route: 042
     Dates: start: 20070915, end: 20080422
  15. HEPARIN SODIUM INJECTION [Suspect]
     Route: 042
     Dates: start: 20070915, end: 20080422
  16. TRAMADOL HCL [Concomitant]
     Indication: PAIN
     Route: 048
  17. HUMALOG [Concomitant]
     Indication: PRODUCT USED FOR UNKNOWN INDICATION
     Route: 058
  18. PHOSLO [Concomitant]
     Indication: PRODUCT USED FOR UNKNOWN INDICATION
     Route: 048
  19. PRILOSEC [Concomitant]
     Indication: PRODUCT USED FOR UNKNOWN INDICATION
     Route: 048
  20. REGLAN [Concomitant]
     Indication: PRODUCT USED FOR UNKNOWN INDICATION
     Route: 048
  21. FOSRENOL [Concomitant]
     Indication: BLOOD PHOSPHORUS INCREASED
     Route: 048
  22. WARFARIN [Concomitant]
     Indication: ANTICOAGULANT THERAPY
     Route: 048
  23. WARFARIN [Concomitant]
     Indication: PRODUCT USED FOR UNKNOWN INDICATION
     Route: 048
  24. JANUVIA [Concomitant]
     Indication: DIABETES MELLITUS
     Route: 048
  25. GLUCERNA ^ROSS^ [Concomitant]
     Indication: MEDICAL DIET
     Route: 048
  26. COREG [Concomitant]
     Indication: HYPERTENSION
     Route: 048
  27. SIMVASTATIN [Concomitant]
     Indication: HYPERCHOLESTEROLAEMIA
     Route: 048
  28. ZETIA [Concomitant]
     Indication: HYPERCHOLESTEROLAEMIA
     Route: 048
  29. AVANDIA [Concomitant]
     Indication: DIABETES MELLITUS
     Route: 048
  30. DULCOLAX [Concomitant]
     Indication: CONSTIPATION
     Route: 054
  31. GUAIFENESIN [Concomitant]
     Indication: PRODUCT USED FOR UNKNOWN INDICATION
     Route: 048
  32. LOPERAMIDE [Concomitant]
     Indication: PRODUCT USED FOR UNKNOWN INDICATION
     Route: 048
  33. CLONIDINE [Concomitant]
     Indication: PRODUCT USED FOR UNKNOWN INDICATION
     Route: 048
  34. DIPHENHYDRAMINE [Concomitant]
     Indication: PRODUCT USED FOR UNKNOWN INDICATION
     Route: 048
  35. HUMULIN R [Concomitant]
     Indication: DIABETES MELLITUS
     Route: 058
  36. PRILOSEC [Concomitant]
     Indication: GASTROOESOPHAGEAL REFLUX DISEASE
     Route: 048
  37. PHOSLO [Concomitant]
     Indication: BLOOD PHOSPHORUS INCREASED
     Route: 048
  38. PROTEIN SUPPLEMENTS [Concomitant]
     Indication: MEDICAL DIET
     Route: 048
  39. EPOGEN [Concomitant]
     Indication: ANAEMIA
     Route: 042
  40. INFLUENZA VACCINE [Concomitant]
     Indication: INFLUENZA
     Route: 065
  41. INSULIN [Concomitant]
     Indication: PRODUCT USED FOR UNKNOWN INDICATION
     Route: 065
  42. TRIAMCINOLONE [Concomitant]
     Indication: PRODUCT USED FOR UNKNOWN INDICATION
     Route: 065
  43. TIGAN [Concomitant]
     Indication: PRODUCT USED FOR UNKNOWN INDICATION
     Route: 065
  44. TYLENOL-500 [Concomitant]
     Indication: PRODUCT USED FOR UNKNOWN INDICATION
     Route: 065
  45. ENGERIX-B [Concomitant]
     Indication: PRODUCT USED FOR UNKNOWN INDICATION
     Route: 065
  46. ZEMPLAR [Concomitant]
     Indication: PRODUCT USED FOR UNKNOWN INDICATION
     Route: 065
  47. FERRLECIT                               /USA/ [Concomitant]
     Indication: PRODUCT USED FOR UNKNOWN INDICATION
     Route: 065
  48. GENTAMYCIN-MP [Concomitant]
     Indication: PRODUCT USED FOR UNKNOWN INDICATION
     Route: 065
  49. VANCOMYCIN [Concomitant]
     Indication: PRODUCT USED FOR UNKNOWN INDICATION
     Route: 065
  50. ZOFRAN [Concomitant]
     Indication: PRODUCT USED FOR UNKNOWN INDICATION
     Route: 065
  51. VYTORIN [Concomitant]
     Indication: PRODUCT USED FOR UNKNOWN INDICATION
     Route: 065
  52. KEFLEX [Concomitant]
     Indication: PRODUCT USED FOR UNKNOWN INDICATION
     Route: 065

REACTIONS (25)
  - ACUTE MYOCARDIAL INFARCTION [None]
  - BODY TEMPERATURE FLUCTUATION [None]
  - BRAIN INJURY [None]
  - CARDIAC ARREST [None]
  - CHILLS [None]
  - COAGULOPATHY [None]
  - DIARRHOEA [None]
  - FATIGUE [None]
  - HAEMORRHAGE [None]
  - HYPOTENSION [None]
  - HYPOXIC-ISCHAEMIC ENCEPHALOPATHY [None]
  - LOSS OF CONSCIOUSNESS [None]
  - NAUSEA [None]
  - OEDEMA [None]
  - PAIN [None]
  - PALLOR [None]
  - PRURITUS [None]
  - PYREXIA [None]
  - RASH [None]
  - RESPIRATORY FAILURE [None]
  - SEPSIS [None]
  - SHOCK [None]
  - UNRESPONSIVE TO STIMULI [None]
  - URINARY TRACT INFECTION [None]
  - VOMITING [None]
